FAERS Safety Report 6136442-6 (Version None)
Quarter: 2009Q1

REPORT INFORMATION
  Report Type: 
  Country: None (occurrence: None)
  Receive Date: 20090325
  Receipt Date: 20090308
  Transmission Date: 20090719
  Serious: Yes (Other)
  Sender: FDA-Public Use
  Company Number: 2007S1005440

PATIENT
  Age: 74 Year
  Sex: Female

DRUGS (7)
  1. SODIUM PHOSPHATES [Suspect]
     Indication: COLONOSCOPY
     Dosage: 90 ML; TOTAL; PO
     Route: 048
     Dates: start: 20041024, end: 20041024
  2. PAXIL [Concomitant]
  3. LIPITOR [Concomitant]
  4. ASPIRIN [Concomitant]
  5. ACTONEL [Concomitant]
  6. PROTONIX /01263201/ [Concomitant]
  7. CALTRATE /00108001/ [Concomitant]

REACTIONS (5)
  - DRUG TOXICITY [None]
  - HYPERPHOSPHATAEMIA [None]
  - NEPHROPATHY [None]
  - RENAL FAILURE CHRONIC [None]
  - TUBULOINTERSTITIAL NEPHRITIS [None]
